FAERS Safety Report 4400070-0 (Version None)
Quarter: 2004Q3

REPORT INFORMATION
  Report Type: 
  Country: None (occurrence: None)
  Receive Date: 20040716
  Receipt Date: 20040225
  Transmission Date: 20050211
  Serious: Yes (Life-Threatening, Hospitalization)
  Sender: FDA-Public Use
  Company Number: US-MERCK-0402USA01829

PATIENT
  Age: 64 Year
  Sex: Male
  Weight: 111 kg

DRUGS (5)
  1. ASPIRIN [Concomitant]
     Indication: PAIN
     Route: 065
  2. LASIX [Concomitant]
     Route: 048
  3. INDOCIN [Concomitant]
     Route: 065
  4. K-DUR 10 [Concomitant]
     Route: 048
  5. VIOXX [Suspect]
     Indication: OSTEOARTHRITIS
     Route: 048
     Dates: start: 20010316, end: 20020624

REACTIONS (13)
  - ANAEMIA [None]
  - CEREBROVASCULAR ACCIDENT [None]
  - EMOTIONAL DISTRESS [None]
  - GLOMERULONEPHRITIS MEMBRANOUS [None]
  - GOUT [None]
  - HYPERGLYCAEMIA [None]
  - MEDICATION ERROR [None]
  - NEPHROLITHIASIS [None]
  - OEDEMA PERIPHERAL [None]
  - PNEUMONIA [None]
  - RENAL FAILURE [None]
  - SLEEP APNOEA SYNDROME [None]
  - URETHRAL STRICTURE [None]
